FAERS Safety Report 9923322 (Version 1)
Quarter: 2014Q1

REPORT INFORMATION
  Report Type: Spontaneous
  Country: US (occurrence: US)
  Receive Date: 20140225
  Receipt Date: 20140225
  Transmission Date: 20141002
  Serious: No
  Sender: FDA-Public Use
  Company Number: US-AMGEN-USASP2013075062

PATIENT
  Age: 46 Year
  Sex: Female

DRUGS (6)
  1. ENBREL [Suspect]
     Indication: PRODUCT USED FOR UNKNOWN INDICATION
     Dosage: 50 MG, QWK
     Route: 058
  2. ULTRAM                             /00599202/ [Concomitant]
     Dosage: 50 MG, UNK
  3. FOLIC ACID [Concomitant]
     Dosage: UNK
  4. METHOTREXATE [Concomitant]
     Dosage: UNK
  5. MOTRIN [Concomitant]
     Dosage: 400 MG, UNK
  6. TYLENOL                            /00020001/ [Concomitant]
     Dosage: 650 MG, UNK

REACTIONS (3)
  - Injection site swelling [Unknown]
  - Injection site erythema [Unknown]
  - Injection site nodule [Unknown]
